FAERS Safety Report 11256915 (Version 1)
Quarter: 2015Q3

REPORT INFORMATION
  Report Type: Spontaneous
  Country: US (occurrence: US)
  Receive Date: 20150709
  Receipt Date: 20150709
  Transmission Date: 20151125
  Serious: No
  Sender: FDA-Public Use
  Company Number: US-PURDUE-USA-2015-0120287

PATIENT
  Sex: Female

DRUGS (1)
  1. BUTRANS [Suspect]
     Active Substance: BUPRENORPHINE
     Indication: HEADACHE
     Dosage: 15 MCG/HR, WEEKLY
     Route: 062
     Dates: start: 20141220, end: 20150110

REACTIONS (3)
  - Fatigue [Unknown]
  - Application site discolouration [Unknown]
  - Application site dryness [Unknown]

NARRATIVE: CASE EVENT DATE: 201412
